FAERS Safety Report 15141956 (Version 2)
Quarter: 2018Q3

REPORT INFORMATION
  Report Type: Report from Study
  Country: GB (occurrence: GB)
  Receive Date: 20180713
  Receipt Date: 20180907
  Transmission Date: 20181010
  Serious: Yes (Other)
  Sender: FDA-Public Use
  Company Number: GB-PFIZER INC-2018273673

PATIENT
  Age: 79 Year
  Sex: Male

DRUGS (2)
  1. SPIRONOLACTONE. [Suspect]
     Active Substance: SPIRONOLACTONE
     Dosage: 50 MG, 1X/DAY
     Route: 048
     Dates: start: 20150323
  2. ENTRESTO [Suspect]
     Active Substance: SACUBITRIL\VALSARTAN
     Indication: CARDIAC FAILURE CHRONIC
     Dosage: 200 MG, DAILY (100 MG (SACUBITRIL 49 MG AND VALSARTAN 51 MG), BID)
     Route: 048
     Dates: start: 20161004

REACTIONS (3)
  - Blood creatinine increased [Unknown]
  - Renal failure [Unknown]
  - Rectal haemorrhage [Recovered/Resolved with Sequelae]

NARRATIVE: CASE EVENT DATE: 20180131
